FAERS Safety Report 7743086-9 (Version None)
Quarter: 2011Q3

REPORT INFORMATION
  Report Type: 
  Country: None (occurrence: None)
  Receive Date: 20110912
  Receipt Date: 20110829
  Transmission Date: 20111222
  Serious: Yes (Hospitalization, Other)
  Sender: FDA-Public Use
  Company Number: US-ELI_LILLY_AND_COMPANY-US201102002239

PATIENT
  Sex: Female
  Weight: 54.875 kg

DRUGS (9)
  1. ALBUTEROL SULFATE AUTOHALER [Concomitant]
  2. ASPIRIN [Concomitant]
  3. DILTIAZEM [Concomitant]
  4. FORTEO [Suspect]
     Indication: OSTEOPOROSIS
     Dosage: 20 UG, DAILY (1/D)
     Route: 065
  5. FORTEO [Suspect]
     Dosage: 20 UG, QD
     Route: 058
     Dates: start: 20101109
  6. NIACIN [Concomitant]
  7. SPIRIVA [Concomitant]
  8. FORTEO [Suspect]
     Dosage: 20 UG, QD
     Route: 058
  9. MEGACE [Concomitant]

REACTIONS (5)
  - INJECTION SITE HAEMATOMA [None]
  - LUNG NEOPLASM MALIGNANT [None]
  - INJECTION SITE PAIN [None]
  - ATRIAL FIBRILLATION [None]
  - ASTHENIA [None]
